FAERS Safety Report 20476377 (Version 1)
Quarter: 2022Q1

REPORT INFORMATION
  Report Type: Spontaneous
  Country: GB (occurrence: GB)
  Receive Date: 20220215
  Receipt Date: 20220215
  Transmission Date: 20220423
  Serious: Yes (Other)
  Sender: FDA-Public Use
  Company Number: GB-PFIZER INC-202200194209

PATIENT
  Age: 62 Year
  Sex: Female

DRUGS (4)
  1. PACLITAXEL [Suspect]
     Active Substance: PACLITAXEL
     Indication: Ovarian cancer
     Dosage: 175 MG/M2, CYCLIC 6 CYCLES OF THREE WEEKLY
  2. LETROZOLE [Concomitant]
     Active Substance: LETROZOLE
     Dosage: UNK
  3. INDOMETHACIN [Concomitant]
     Active Substance: INDOMETHACIN
  4. PANTOPRAZOLE [Concomitant]
     Active Substance: PANTOPRAZOLE

REACTIONS (4)
  - Maculopathy [Unknown]
  - Photosensitivity reaction [Unknown]
  - Macular hole [Unknown]
  - Epiretinal membrane [Unknown]
